FAERS Safety Report 8997021 (Version 3)
Quarter: 2013Q4

REPORT INFORMATION
  Report Type: Spontaneous
  Country: GB (occurrence: None)
  Receive Date: 20121221
  Receipt Date: 20131028
  Transmission Date: 20140711
  Serious: Yes (Death, Congenital Anomaly)
  Sender: FDA-Public Use
  Company Number: AUR-APL-2012-05308

PATIENT
  Sex: Male
  Weight: .15 kg

DRUGS (1)
  1. RAMIPRIL [Suspect]
     Indication: HYPERTENSION
     Dosage: 5 MG (5 MG, 1 IN 1 D) , TRANSPLACENTAL
     Route: 064
     Dates: end: 20120829

REACTIONS (4)
  - Placental insufficiency [None]
  - Maternal drugs affecting foetus [None]
  - Foetal growth restriction [None]
  - Foetal death [None]
